FAERS Safety Report 10062945 (Version 1)
Quarter: 2014Q2

REPORT INFORMATION
  Report Type: Spontaneous
  Country: GB (occurrence: GB)
  Receive Date: 20140407
  Receipt Date: 20140407
  Transmission Date: 20141212
  Serious: Yes (Other)
  Sender: FDA-Public Use
  Company Number: GB-WATSON-2014-06335

PATIENT
  Age: 50 Year
  Sex: Female
  Weight: 89 kg

DRUGS (2)
  1. SIMVASTATIN (UNKNOWN) [Suspect]
     Indication: HYPERCHOLESTEROLAEMIA
     Dosage: 30 MG, UNK
     Route: 048
     Dates: start: 20100303, end: 20101006
  2. ASPIRIN [Concomitant]
     Indication: PRODUCT USED FOR UNKNOWN INDICATION
     Dosage: UNK
     Route: 065

REACTIONS (3)
  - Pain in extremity [Recovered/Resolved with Sequelae]
  - Disturbance in attention [Recovered/Resolved with Sequelae]
  - Feeling abnormal [Recovered/Resolved with Sequelae]
